FAERS Safety Report 4938743-3 (Version None)
Quarter: 2006Q1

REPORT INFORMATION
  Report Type: 
  Country: None (occurrence: None)
  Receive Date: 20060309
  Receipt Date: 20060130
  Transmission Date: 20060701
  Serious: Yes (Other)
  Sender: FDA-Public Use
  Company Number: AU-BOEHRINGER INGELHEIM PHARMACEUTICALS, INC.-2006-BP-01649AU

PATIENT
  Sex: Female
  Weight: 46 kg

DRUGS (5)
  1. ASASANTIN SR (CAPSULE, LONG ACTING) [Suspect]
     Dosage: 400/50 MG/MG
     Route: 048
     Dates: start: 20030101
  2. KARVEZIDE [Concomitant]
     Dosage: 300/12.5 MG/MG
  3. LIPITOR [Concomitant]
  4. SOMAC [Concomitant]
  5. FOSAMAX [Concomitant]

REACTIONS (1)
  - CONTUSION [None]
